FAERS Safety Report 4575968-3 (Version None)
Quarter: 2005Q1

REPORT INFORMATION
  Report Type: 
  Country: None (occurrence: None)
  Receive Date: 20050209
  Receipt Date: 20050131
  Transmission Date: 20050727
  Serious: Yes (Death)
  Sender: FDA-Public Use
  Company Number: US-BRISTOL-MYERS SQUIBB COMPANY-12844122

PATIENT
  Age: 69 Year
  Sex: Male

DRUGS (1)
  1. MEGACE [Suspect]
     Route: 048

REACTIONS (1)
  - DEATH [None]
